FAERS Safety Report 5944844-3 (Version None)
Quarter: 2008Q4

REPORT INFORMATION
  Report Type: 
  Country: None (occurrence: None)
  Receive Date: 20081107
  Receipt Date: 20081030
  Transmission Date: 20090506
  Serious: Yes (Life-Threatening, Hospitalization)
  Sender: FDA-Public Use
  Company Number: US-BAXTER-2008BH011694

PATIENT
  Age: 20 Year
  Sex: Female
  Weight: 40 kg

DRUGS (6)
  1. IFOSFAMIDE GENERIC [Suspect]
     Indication: OVARIAN CANCER
     Route: 042
     Dates: start: 20060526, end: 20060530
  2. CARBOPLATIN GENERIC [Suspect]
     Indication: OVARIAN CANCER
     Route: 042
     Dates: start: 20060901, end: 20060903
  3. ETOPOSIDE [Suspect]
     Indication: DRUG USE FOR UNKNOWN INDICATION
     Route: 042
     Dates: start: 20060901, end: 20060903
  4. CISPLATIN [Suspect]
     Indication: OVARIAN CANCER
     Route: 042
     Dates: start: 20060526, end: 20060530
  5. PACLITAXEL [Concomitant]
     Indication: DRUG USE FOR UNKNOWN INDICATION
     Route: 042
     Dates: start: 20060526, end: 20060526
  6. PANTOPRAZOLE SODIUM [Concomitant]
     Indication: DRUG USE FOR UNKNOWN INDICATION
     Route: 042
     Dates: start: 20060901, end: 20060930

REACTIONS (3)
  - GASTROINTESTINAL HAEMORRHAGE [None]
  - OTOTOXICITY [None]
  - RENAL FAILURE ACUTE [None]
